FAERS Safety Report 5402608-3 (Version None)
Quarter: 2007Q3

REPORT INFORMATION
  Report Type: 
  Country: None (occurrence: None)
  Receive Date: 20070801
  Receipt Date: 20070220
  Transmission Date: 20080115
  Serious: No
  Sender: FDA-Public Use
  Company Number: A0640248A

PATIENT
  Age: 41 Year
  Sex: Female

DRUGS (13)
  1. IMITREX [Suspect]
     Indication: MIGRAINE
     Dosage: 100MG AS REQUIRED
     Route: 048
     Dates: start: 20040101
  2. IMITREX [Suspect]
     Dosage: 25MG AS REQUIRED
     Route: 048
  3. IMITREX [Suspect]
     Route: 058
     Dates: start: 19950101
  4. VICODIN [Concomitant]
  5. MIDRIN [Concomitant]
  6. CAFERGOT [Concomitant]
  7. AMERGE [Concomitant]
  8. PRILOSEC [Concomitant]
  9. MEPERIDINE HCL [Concomitant]
  10. DARVOCET [Concomitant]
  11. HYDROCHLOROTHIAZIDE [Concomitant]
  12. TOPAMAX [Concomitant]
  13. CALCIUM SUPPLEMENT [Concomitant]

REACTIONS (6)
  - CHEST DISCOMFORT [None]
  - DIZZINESS [None]
  - DRUG INEFFECTIVE [None]
  - FATIGUE [None]
  - MUSCLE STRAIN [None]
  - TRISMUS [None]
